FAERS Safety Report 5746156-X (Version None)
Quarter: 2008Q2

REPORT INFORMATION
  Report Type: 
  Country: None (occurrence: None)
  Receive Date: 20080520
  Receipt Date: 20080513
  Transmission Date: 20081010
  Serious: Yes (Other)
  Sender: FDA-Public Use
  Company Number: 2008SP009056

PATIENT
  Age: 44 Year
  Sex: Male

DRUGS (5)
  1. TEMODAL [Suspect]
     Indication: GLIOBLASTOMA
     Dosage: 300 MG; PO
     Route: 048
     Dates: start: 20021201
  2. TRILEPTAL [Concomitant]
  3. DEPAKENE [Concomitant]
  4. LANSOPRAZOLE [Concomitant]
  5. ZOFRAN [Concomitant]

REACTIONS (1)
  - OSTEONECROSIS [None]
